FAERS Safety Report 9116870 (Version 1)
Quarter: 2013Q1

REPORT INFORMATION
  Report Type: Spontaneous
  Country: CA (occurrence: CA)
  Receive Date: 20130225
  Receipt Date: 20130225
  Transmission Date: 20140127
  Serious: Yes (Other)
  Sender: FDA-Public Use
  Company Number: PHHY2013CA017696

PATIENT
  Age: 70 Year
  Sex: Female

DRUGS (1)
  1. ESTRADOT [Suspect]
     Dosage: UNK UKN, UNK
     Route: 062

REACTIONS (5)
  - Asthma [Unknown]
  - Hyperaesthesia [Unknown]
  - Fatigue [Unknown]
  - Feeling hot [Unknown]
  - Alopecia [Unknown]
